FAERS Safety Report 4631584-6 (Version None)
Quarter: 2005Q2

REPORT INFORMATION
  Report Type: 
  Country: None (occurrence: None)
  Receive Date: 20050407
  Receipt Date: 20050323
  Transmission Date: 20051028
  Serious: Yes (Other)
  Sender: FDA-Public Use
  Company Number: PHEH2005US02658

PATIENT
  Age: 80 Year
  Sex: Male

DRUGS (1)
  1. VISUDYNE [Suspect]
     Indication: MACULAR DEGENERATION
     Dosage: 12.3 MG DAILY IV
     Route: 042
     Dates: start: 20050120, end: 20050120

REACTIONS (6)
  - EXTRAVASATION [None]
  - INFUSION SITE ERYTHEMA [None]
  - INFUSION SITE PAIN [None]
  - INFUSION SITE ULCER [None]
  - INJECTION SITE NECROSIS [None]
  - MEDICATION ERROR [None]
